FAERS Safety Report 6431956-3 (Version None)
Quarter: 2009Q4

REPORT INFORMATION
  Report Type: 
  Country: None (occurrence: None)
  Receive Date: 20091109
  Receipt Date: 20091028
  Transmission Date: 20100525
  Serious: Yes (Other)
  Sender: FDA-Public Use
  Company Number: GB-JNJFOC-20091008857

PATIENT
  Sex: Female

DRUGS (4)
  1. PARACETAMOL [Suspect]
     Route: 064
  2. PARACETAMOL [Suspect]
     Indication: DRUG EXPOSURE DURING PREGNANCY
     Route: 064
  3. ARAVA [Suspect]
     Indication: DRUG EXPOSURE DURING PREGNANCY
     Dosage: EXPOSURE DURING FIRST TRIMESTER
     Route: 064
  4. PREDNISOLONE [Suspect]
     Indication: DRUG EXPOSURE DURING PREGNANCY
     Route: 064

REACTIONS (3)
  - CARDIAC MURMUR [None]
  - CARDIAC VALVE DISEASE [None]
  - PREMATURE BABY [None]
